FAERS Safety Report 13925626 (Version 1)
Quarter: 2017Q3

REPORT INFORMATION
  Report Type: Spontaneous
  Country: US (occurrence: US)
  Receive Date: 20170831
  Receipt Date: 20170831
  Transmission Date: 20171127
  Serious: Yes (Death, Hospitalization)
  Sender: FDA-Public Use
  Company Number: US-VISTAPHARM, INC.-VER201708-000393

PATIENT
  Age: 47 Year
  Sex: Male

DRUGS (1)
  1. METHADONE [Suspect]
     Active Substance: METHADONE HYDROCHLORIDE

REACTIONS (4)
  - Respiratory distress [Unknown]
  - Pneumonia aspiration [Unknown]
  - Overdose [Unknown]
  - Death [Fatal]
